FAERS Safety Report 25460751 (Version 1)
Quarter: 2025Q2

REPORT INFORMATION
  Report Type: Spontaneous
  Country: RU (occurrence: RU)
  Receive Date: 20250620
  Receipt Date: 20250620
  Transmission Date: 20250716
  Serious: Yes (Other)
  Sender: NOVARTIS
  Company Number: RU-002147023-NVSC2025RU098708

PATIENT
  Sex: Female

DRUGS (3)
  1. RIBOCICLIB [Suspect]
     Active Substance: RIBOCICLIB
     Indication: Product used for unknown indication
     Dosage: 600 MG, QD (ON DAYS 1- 21, 7 DAYS BREAK)
     Route: 065
     Dates: start: 20231201
  2. ZOLEDRONIC ACID [Suspect]
     Active Substance: ZOLEDRONIC ACID
     Indication: Product used for unknown indication
     Route: 041
     Dates: start: 20231201
  3. FULVESTRANT [Concomitant]
     Active Substance: FULVESTRANT
     Indication: Product used for unknown indication
     Dosage: 500 MG, QMO
     Route: 030
     Dates: start: 20231201

REACTIONS (3)
  - Leukopenia [Recovered/Resolved]
  - Hepatotoxicity [Recovered/Resolved]
  - Diarrhoea [Recovered/Resolved]
